FAERS Safety Report 6236622-5 (Version None)
Quarter: 2009Q2

REPORT INFORMATION
  Report Type: 
  Country: None (occurrence: None)
  Receive Date: 20090619
  Receipt Date: 20080724
  Transmission Date: 20091009
  Serious: Yes (Other)
  Sender: FDA-Public Use
  Company Number: US-ASTRAZENECA-2008UW15439

PATIENT
  Age: 73 Year
  Sex: Female

DRUGS (7)
  1. ATACAND [Suspect]
     Route: 048
     Dates: start: 20080501
  2. REVLIMID [Concomitant]
     Indication: IMMUNOSUPPRESSION
     Dosage: 21 DAYS THEN ONE WEEK OFF
     Dates: start: 20060901
  3. LEVOTHYROXINE SODIUM [Concomitant]
  4. PROPRANOLOL [Concomitant]
  5. XALATAN [Concomitant]
  6. HYDROCHLOROTHIAZIDE [Concomitant]
  7. ASPIRIN [Concomitant]

REACTIONS (5)
  - ASTHENIA [None]
  - BLOOD UREA INCREASED [None]
  - CREATININE RENAL CLEARANCE DECREASED [None]
  - DEPRESSION [None]
  - SOMNOLENCE [None]
